FAERS Safety Report 9727534 (Version 1)
Quarter: 2013Q4

REPORT INFORMATION
  Report Type: Spontaneous
  Country: IT (occurrence: IT)
  Receive Date: 20131203
  Receipt Date: 20131203
  Transmission Date: 20140711
  Serious: Yes (Other)
  Sender: FDA-Public Use
  Company Number: IT-BAYER-2013-144670

PATIENT
  Age: 48 Year
  Sex: Female

DRUGS (1)
  1. KLAIRA [Suspect]
     Indication: ORAL CONTRACEPTION
     Dosage: DAILY DOSE 1 DF
     Route: 048
     Dates: start: 20130801, end: 20130820

REACTIONS (2)
  - Pain in extremity [Unknown]
  - Oedema peripheral [Unknown]
